FAERS Safety Report 4435624-9 (Version None)
Quarter: 2004Q3

REPORT INFORMATION
  Report Type: 
  Country: None (occurrence: None)
  Receive Date: 20040726
  Receipt Date: 20040507
  Transmission Date: 20050211
  Serious: No
  Sender: FDA-Public Use
  Company Number: USA040567044

PATIENT
  Age: 73 Year
  Sex: Female
  Weight: 64 kg

DRUGS (3)
  1. FORTEO [Suspect]
     Indication: OSTEOPOROSIS
     Dosage: 20 UG/1 DAY
     Dates: start: 20040301
  2. GLUCOSAMINE [Concomitant]
  3. EYE DROPS (TETRYZOLINE HYDROCHLORIDE) [Concomitant]

REACTIONS (1)
  - VISUAL ACUITY REDUCED [None]
